FAERS Safety Report 6131485-0 (Version None)
Quarter: 2009Q1

REPORT INFORMATION
  Report Type: 
  Country: None (occurrence: None)
  Receive Date: 20090325
  Receipt Date: 20080819
  Transmission Date: 20090719
  Serious: Yes (Death)
  Sender: FDA-Public Use
  Company Number: US-BRISTOL-MYERS SQUIBB COMPANY-14307102

PATIENT
  Age: 52 Year
  Sex: Male
  Weight: 62 kg

DRUGS (6)
  1. ERBITUX [Suspect]
     Indication: LARYNGEAL CANCER
     Dosage: 100MG. ALSO TAKEN: 200MG: NDC #: 66733095823: 3 VIALS: LOT #: 07C00222B, EXPIRATION DATE: 06/2010.
     Dates: start: 20080201, end: 20080201
  2. ZOFRAN [Concomitant]
  3. CISPLATIN [Concomitant]
  4. PACLITAXEL [Concomitant]
  5. ONDANSETRON [Concomitant]
  6. DEXAMETHASONE TAB [Concomitant]
     Indication: PREMEDICATION
     Route: 042

REACTIONS (1)
  - DEATH [None]
